FAERS Safety Report 5474710-1 (Version None)
Quarter: 2007Q3

REPORT INFORMATION
  Report Type: 
  Country: None (occurrence: None)
  Receive Date: 20070927
  Receipt Date: 20070927
  Transmission Date: 20080115
  Serious: Yes (Hospitalization)
  Sender: FDA-Public Use
  Company Number: None

PATIENT
  Sex: Female
  Weight: 60.9 kg

DRUGS (2)
  1. CISPLATIN [Suspect]
     Dosage: 84 MG
  2. CETUXIMAB (ERBITUX)(714692) [Suspect]
     Dosage: 1254 MG

REACTIONS (6)
  - CULTURE URINE POSITIVE [None]
  - HAEMATOCRIT DECREASED [None]
  - HAEMOGLOBIN DECREASED [None]
  - PYREXIA [None]
  - STAPHYLOCOCCAL INFECTION [None]
  - URINARY RETENTION [None]
